FAERS Safety Report 7467967-9 (Version None)
Quarter: 2011Q2

REPORT INFORMATION
  Report Type: 
  Country: None (occurrence: None)
  Receive Date: 20110509
  Receipt Date: 20110224
  Transmission Date: 20111010
  Serious: No
  Sender: FDA-Public Use
  Company Number: US-ALEXION-A201100249

PATIENT
  Sex: Male
  Weight: 86.3 kg

DRUGS (1)
  1. SOLIRIS [Suspect]
     Indication: PAROXYSMAL NOCTURNAL HAEMOGLOBINURIA
     Dosage: 900 MG, Q2W
     Route: 042

REACTIONS (4)
  - BLOOD URINE PRESENT [None]
  - DYSPNOEA [None]
  - NEPHROLITHIASIS [None]
  - FATIGUE [None]
